FAERS Safety Report 6294622-3 (Version None)
Quarter: 2009Q3

REPORT INFORMATION
  Report Type: 
  Country: None (occurrence: None)
  Receive Date: 20090803
  Receipt Date: 20090722
  Transmission Date: 20100115
  Serious: Yes (Other)
  Sender: FDA-Public Use
  Company Number: US-NOVOPROD-289668

PATIENT
  Age: 66 Year
  Sex: Male

DRUGS (12)
  1. NOVOLOG MIX 70/30 [Suspect]
     Indication: INSULIN-REQUIRING TYPE 2 DIABETES MELLITUS
     Dosage: 120 IU, QD
     Route: 058
     Dates: start: 20060101
  2. NOVOLOG MIX 70/30 [Suspect]
     Dosage: 135 IU, QD
     Route: 058
     Dates: start: 20090627
  3. LEVOTHYROXINE SODIUM [Concomitant]
     Indication: THYROID DISORDER
     Dosage: .125 MG, QD
  4. COZAAR [Concomitant]
     Indication: BLOOD PRESSURE ABNORMAL
     Dosage: 50 MG, QD
  5. NORVASC [Concomitant]
     Indication: BLOOD PRESSURE ABNORMAL
     Dosage: 35 MG, QD
  6. ATENOLOL [Concomitant]
     Indication: BLOOD PRESSURE ABNORMAL
     Dosage: 50 MG, QD
  7. SPIRONOLACTONE [Concomitant]
     Indication: BLOOD PRESSURE ABNORMAL
     Dosage: 25 MG, QD
  8. FLOMAX [Concomitant]
     Indication: RENAL DISORDER
     Dosage: .4 MG, QD
  9. LYRICA [Concomitant]
     Indication: NEUROPATHY PERIPHERAL
     Dosage: 150 MG, QD
  10. JANUVIA [Concomitant]
     Indication: TYPE 2 DIABETES MELLITUS
     Dosage: 50 MG, QD
  11. ASPIRIN [Concomitant]
     Indication: ANTICOAGULANT THERAPY
     Dosage: 325 MG, UNK
  12. CRESTOR [Concomitant]
     Indication: BLOOD CHOLESTEROL INCREASED
     Dosage: 5 MG, QD

REACTIONS (3)
  - ABDOMINAL PAIN [None]
  - BLOOD GLUCOSE INCREASED [None]
  - INFECTION [None]
